FAERS Safety Report 9364102 (Version 1)
Quarter: 2013Q2

REPORT INFORMATION
  Report Type: Report from Study
  Country: JP (occurrence: JP)
  Receive Date: 20130624
  Receipt Date: 20130624
  Transmission Date: 20140414
  Serious: Yes (Death, Other)
  Sender: FDA-Public Use
  Company Number: JP-GENZYME-THYM-1002838

PATIENT
  Age: 42 Year
  Sex: Female
  Weight: 45 kg

DRUGS (26)
  1. THYMOGLOBULIN [Suspect]
     Indication: BONE MARROW CONDITIONING REGIMEN
     Dosage: 130 MG, QD
     Route: 042
     Dates: start: 20091109, end: 20091110
  2. ANTIBIOTICS-RESISTANT LACTIC ACID BACTERIAE [Concomitant]
     Indication: FLATULENCE
     Dosage: UNK
     Route: 065
     Dates: start: 20091109, end: 20100131
  3. URSODEOXYCHOLIC ACID [Concomitant]
     Indication: PROPHYLAXIS
     Dosage: UNK
     Route: 065
     Dates: start: 20091109, end: 20100131
  4. URSODEOXYCHOLIC ACID [Concomitant]
     Indication: PROPHYLAXIS AGAINST GRAFT VERSUS HOST DISEASE
  5. NYSTATIN [Concomitant]
     Indication: PROPHYLAXIS
     Dosage: UNK
     Route: 065
     Dates: start: 20091109, end: 20091117
  6. VANCOMYCIN HYDROCHLORIDE [Concomitant]
     Indication: PROPHYLAXIS
     Dosage: UNK
     Route: 065
     Dates: start: 20091109, end: 20091208
  7. AMPHOTERICIN B [Concomitant]
     Indication: PROPHYLAXIS
     Dosage: UNK
     Route: 065
     Dates: start: 20091109, end: 20091117
  8. AMPHOTERICIN B [Concomitant]
     Indication: PYREXIA
     Dosage: UNK
     Dates: start: 20091110, end: 20091206
  9. ACICLOVIR [Concomitant]
     Indication: ANTIVIRAL PROPHYLAXIS
     Dosage: UNK
     Route: 065
     Dates: start: 20091109, end: 20091117
  10. ACICLOVIR [Concomitant]
     Dosage: UNK
     Dates: start: 20100102, end: 20100131
  11. DIFLUCORTOLONE VALERATE [Concomitant]
     Indication: PROPHYLAXIS
     Dosage: UNK
     Route: 065
     Dates: start: 20091110, end: 20091203
  12. FENTANYL [Concomitant]
     Indication: PAIN
     Dosage: UNK
     Route: 065
     Dates: start: 20091113, end: 20091229
  13. ITRACONAZOLE [Concomitant]
     Indication: ANTIFUNGAL PROPHYLAXIS
     Dosage: UNK
     Route: 065
     Dates: start: 20091114, end: 20091208
  14. MICAFUNGIN SODIUM [Concomitant]
     Indication: PROPHYLAXIS
     Dosage: UNK
     Route: 065
     Dates: start: 20091109, end: 20100131
  15. DANAPAROID SODIUM [Concomitant]
     Indication: PROPHYLAXIS
     Dosage: UNK
     Route: 065
     Dates: start: 20091109, end: 20100131
  16. DEFEROXAMINE MESILATE [Concomitant]
     Indication: PROPHYLAXIS
     Dosage: UNK
     Route: 065
     Dates: start: 20091109, end: 20100131
  17. TACROLIMUS [Concomitant]
     Indication: PROPHYLAXIS AGAINST GRAFT VERSUS HOST DISEASE
     Dosage: UNK
     Route: 065
     Dates: start: 20091109, end: 20100103
  18. CICLOSPORIN [Concomitant]
     Indication: PROPHYLAXIS AGAINST GRAFT VERSUS HOST DISEASE
     Dosage: UNK
     Route: 065
     Dates: start: 20100103, end: 20100131
  19. LENOGRASTIM [Concomitant]
     Indication: NEUTROPHIL COUNT
     Dosage: UNK
     Route: 065
     Dates: start: 20091110, end: 20100131
  20. DORIPENEM HYDRATE [Concomitant]
     Indication: INFECTION
     Dosage: UNK
     Route: 065
     Dates: start: 20100106, end: 20100124
  21. ARBEKACIN SULFATE [Concomitant]
     Indication: INFECTION
     Dosage: UNK
     Route: 065
     Dates: start: 20100107, end: 20100131
  22. CLINDAMYCIN [Concomitant]
     Indication: INFECTION
     Dosage: UNK
     Route: 065
     Dates: start: 20100107, end: 20100131
  23. MEROPENEM TRIHYDRATE [Concomitant]
     Indication: INFECTION
     Dosage: UNK
     Route: 065
     Dates: start: 20100124, end: 20100131
  24. HYDROCORTISONE SODIUM SUCCINATE [Concomitant]
     Indication: TRANSFUSION
     Dosage: UNK
     Route: 065
     Dates: start: 20091109, end: 20091201
  25. FOSCARNET SODIUM [Concomitant]
     Indication: CYTOMEGALOVIRUS VIRAEMIA
     Dosage: UNK
     Route: 065
     Dates: start: 20100103, end: 20100105
  26. GANCICLOVIR [Concomitant]
     Indication: CYTOMEGALOVIRUS VIRAEMIA
     Dosage: UNK
     Route: 065
     Dates: start: 20100106, end: 20100116

REACTIONS (6)
  - Febrile neutropenia [Recovered/Resolved]
  - Pyrexia [Fatal]
  - Cytomegalovirus test positive [Unknown]
  - Infection [Unknown]
  - Histiocytosis haematophagic [Fatal]
  - Stomatitis [Fatal]
